FAERS Safety Report 20107922 (Version 1)
Quarter: 2021Q4

REPORT INFORMATION
  Report Type: Spontaneous
  Country: US (occurrence: US)
  Receive Date: 20211124
  Receipt Date: 20211124
  Transmission Date: 20220303
  Serious: No
  Sender: FDA-Public Use
  Company Number: US-PERRIGO-21US006959

PATIENT
  Age: 87 Year
  Sex: Female
  Weight: 43.084 kg

DRUGS (4)
  1. POLYETHYLENE GLYCOL 3350 [Suspect]
     Active Substance: POLYETHYLENE GLYCOL 3350
     Indication: Constipation
     Dosage: UNKNOWN, UNKNOWN
     Route: 048
     Dates: start: 202105, end: 202105
  2. POLYETHYLENE GLYCOL 3350 [Suspect]
     Active Substance: POLYETHYLENE GLYCOL 3350
     Dosage: 17 G, SINGLE
     Route: 048
     Dates: start: 20210615, end: 20210615
  3. TYLENOL                            /00020001/ [Concomitant]
     Indication: Pain
     Dosage: UNKNOWN, UNKNOWN
     Route: 065
  4. ADVIL                              /00044201/ [Concomitant]
     Indication: Pain
     Dosage: UNKNOWN, UNKNOWN
     Route: 065

REACTIONS (3)
  - Asthenia [Unknown]
  - Abdominal pain upper [Recovered/Resolved]
  - Diarrhoea [Recovered/Resolved]

NARRATIVE: CASE EVENT DATE: 20210501
